FAERS Safety Report 4436949-3 (Version None)
Quarter: 2004Q3

REPORT INFORMATION
  Report Type: 
  Country: None (occurrence: None)
  Receive Date: 20040726
  Receipt Date: 20040517
  Transmission Date: 20050211
  Serious: No
  Sender: FDA-Public Use
  Company Number: USA040362945

PATIENT
  Age: 89 Year
  Sex: Female

DRUGS (1)
  1. FORTEO [Suspect]
     Dates: start: 20031201

REACTIONS (5)
  - ANXIETY [None]
  - ASTHENIA [None]
  - BLOOD PRESSURE INCREASED [None]
  - NERVOUSNESS [None]
  - PALPITATIONS [None]
